FAERS Safety Report 9425164 (Version 1)
Quarter: 2013Q3

REPORT INFORMATION
  Report Type: Spontaneous
  Country: GR (occurrence: GR)
  Receive Date: 20130729
  Receipt Date: 20130729
  Transmission Date: 20140515
  Serious: Yes (Other)
  Sender: FDA-Public Use
  Company Number: GR-JNJFOC-20130710748

PATIENT
  Sex: 0

DRUGS (6)
  1. REMICADE [Suspect]
     Indication: COLITIS ULCERATIVE
     Route: 042
  2. REMICADE [Suspect]
     Indication: CROHN^S DISEASE
     Route: 042
  3. ADALIMUMAB [Suspect]
     Indication: COLITIS ULCERATIVE
     Route: 065
  4. ADALIMUMAB [Suspect]
     Indication: CROHN^S DISEASE
     Route: 065
  5. CORTICOSTEROIDS [Concomitant]
     Route: 065
  6. 5-AMINOSALICYLIC ACID [Concomitant]
     Route: 065

REACTIONS (1)
  - Quality of life decreased [Unknown]
